FAERS Safety Report 7974108-8 (Version None)
Quarter: 2011Q4

REPORT INFORMATION
  Report Type: 
  Country: None (occurrence: None)
  Receive Date: 20111213
  Receipt Date: 20111207
  Transmission Date: 20120403
  Serious: Yes (Hospitalization, Other)
  Sender: FDA-Public Use
  Company Number: PHHY2011DE106942

PATIENT
  Age: 75 Year
  Sex: Male

DRUGS (1)
  1. VANCOMYCIN [Suspect]
     Indication: ANTIBIOTIC RESISTANT STAPHYLOCOCCUS TEST POSITIVE
     Dosage: UNK UKN, UNK
     Route: 042

REACTIONS (8)
  - SKIN EROSION [None]
  - CONJUNCTIVAL HYPERAEMIA [None]
  - ERYTHEMA [None]
  - BLISTER [None]
  - BACTERIAL DISEASE CARRIER [None]
  - LINEAR IGA DISEASE [None]
  - SKIN DISORDER [None]
  - PEMPHIGOID [None]
